FAERS Safety Report 5518135-9 (Version None)
Quarter: 2007Q4

REPORT INFORMATION
  Report Type: 
  Country: None (occurrence: None)
  Receive Date: 20071113
  Receipt Date: 20071030
  Transmission Date: 20080405
  Serious: Yes (Other)
  Sender: FDA-Public Use
  Company Number: STI-2007-01802

PATIENT
  Sex: Female

DRUGS (1)
  1. CLINDOXYL GEL            (CLINDAMYCIN + BENZOYL PEROXIDE) [Suspect]
     Dosage: FACE AND BREAST
     Route: 061

REACTIONS (1)
  - URTICARIA [None]
